FAERS Safety Report 4967100-9 (Version None)
Quarter: 2006Q2

REPORT INFORMATION
  Report Type: 
  Country: None (occurrence: None)
  Receive Date: 20060410
  Receipt Date: 20060327
  Transmission Date: 20061013
  Serious: Yes (Life-Threatening)
  Sender: FDA-Public Use
  Company Number: IT-NOVOPROD-251976

PATIENT
  Sex: Female

DRUGS (3)
  1. NOVOSEVEN [Suspect]
     Indication: ACQUIRED HAEMOPHILIA
     Dosage: 360 KIU, EVERY 3 HOURS
     Dates: start: 20060324, end: 20060324
  2. CEPHALOSPORIN C [Concomitant]
     Dates: start: 20060324
  3. PROTON PUMP INHIBITORS [Concomitant]
     Dates: start: 20060324

REACTIONS (2)
  - ANGIONEUROTIC OEDEMA [None]
  - RASH [None]
